FAERS Safety Report 18180852 (Version 1)
Quarter: 2020Q3

REPORT INFORMATION
  Report Type: Spontaneous
  Country: SG (occurrence: SG)
  Receive Date: 20200821
  Receipt Date: 20200821
  Transmission Date: 20201103
  Serious: Yes (Death)
  Sender: FDA-Public Use
  Company Number: NVSC2020SG230172

PATIENT

DRUGS (1)
  1. PIQRAY [Suspect]
     Active Substance: ALPELISIB
     Indication: GASTRIC CANCER
     Dosage: 300 MG, QD
     Route: 065
     Dates: start: 202005

REACTIONS (3)
  - Gastric cancer [Fatal]
  - Malignant neoplasm progression [Fatal]
  - Off label use [Unknown]
